FAERS Safety Report 7472896-0 (Version None)
Quarter: 2011Q2

REPORT INFORMATION
  Report Type: 
  Country: None (occurrence: None)
  Receive Date: 20110511
  Receipt Date: 20110403
  Transmission Date: 20111010
  Serious: Yes (Hospitalization, Other)
  Sender: FDA-Public Use
  Company Number: US-BAYER-2011-005524

PATIENT
  Age: 33 Year
  Sex: Female
  Weight: 81.633 kg

DRUGS (9)
  1. HYDROCODONE BITARTRATE [Concomitant]
     Dosage: UNK
     Dates: start: 20090102
  2. MUPIROCIN [Concomitant]
  3. YAZ [Suspect]
     Dosage: UNK
     Dates: start: 20070301, end: 20070801
  4. LEVOTHYROXINE SODIUM [Concomitant]
  5. SUMATRIPTAN [Concomitant]
  6. YAZ [Suspect]
     Indication: CONTRACEPTION
     Dosage: UNK
     Dates: start: 20070316, end: 20091201
  7. SINGULAIR [Concomitant]
  8. XOPENEX [Concomitant]
  9. DOXYCYCLIN [DOXYCYCLINE] [Concomitant]
     Dosage: UNK
     Dates: start: 20091202

REACTIONS (3)
  - PAIN [None]
  - GALLBLADDER DISORDER [None]
  - CHOLECYSTITIS [None]
